FAERS Safety Report 9265674 (Version 1)
Quarter: 2013Q2

REPORT INFORMATION
  Report Type: Spontaneous
  Country: GB (occurrence: GB)
  Receive Date: 20130501
  Receipt Date: 20130501
  Transmission Date: 20140414
  Serious: Yes (Other)
  Sender: FDA-Public Use
  Company Number: GB-009507513-1304GBR015442

PATIENT
  Sex: Male
  Weight: 79 kg

DRUGS (3)
  1. VICTRELIS [Suspect]
     Indication: HEPATITIS C
     Dosage: 800 MG, TID
     Route: 048
     Dates: start: 20130404, end: 20130405
  2. PEGINTERFERON ALFA-2B [Suspect]
     Dosage: 120 MICROGRAM, QW
     Route: 058
     Dates: start: 20130307, end: 20130405
  3. REBETOL [Suspect]
     Indication: HEPATITIS C
     Dosage: 600 MG, BID
     Route: 048
     Dates: start: 20130307, end: 20130405

REACTIONS (1)
  - Dysgeusia [Recovering/Resolving]
